FAERS Safety Report 25085419 (Version 1)
Quarter: 2025Q1

REPORT INFORMATION
  Report Type: Spontaneous
  Country: US (occurrence: None)
  Receive Date: 20250314
  Receipt Date: 20250314
  Transmission Date: 20250408
  Serious: Yes (Other)
  Sender: FDA-CTU
  Company Number: None

PATIENT
  Age: 50 Year
  Sex: Female

DRUGS (8)
  1. VITRAKVI [Suspect]
     Active Substance: LAROTRECTINIB
     Indication: Colon cancer metastatic
     Dosage: 100 MG TWICE A DAY ORAL
     Route: 048
     Dates: start: 20231201, end: 20240604
  2. LEVOTHYROXINE [Concomitant]
     Active Substance: LEVOTHYROXINE
  3. LUBIPROSTONE [Concomitant]
     Active Substance: LUBIPROSTONE
  4. FEXOFENADINE [Concomitant]
     Active Substance: FEXOFENADINE HYDROCHLORIDE
  5. FENTANYL [Concomitant]
     Active Substance: FENTANYL
  6. SERTRALINE [Concomitant]
     Active Substance: SERTRALINE HYDROCHLORIDE
  7. PREDNISONE [Concomitant]
     Active Substance: PREDNISONE
  8. TRAZODONE [Concomitant]
     Active Substance: TRAZODONE HYDROCHLORIDE

REACTIONS (3)
  - Swelling [None]
  - Rash [None]
  - Amnesia [None]

NARRATIVE: CASE EVENT DATE: 20240604
